FAERS Safety Report 6095399-7 (Version None)
Quarter: 2009Q1

REPORT INFORMATION
  Report Type: 
  Country: None (occurrence: None)
  Receive Date: 20090227
  Receipt Date: 20080415
  Transmission Date: 20090719
  Serious: No
  Sender: FDA-Public Use
  Company Number: A0717338A

PATIENT
  Age: 28 Year
  Sex: Female

DRUGS (3)
  1. LAMICTAL [Suspect]
     Indication: BIPOLAR DISORDER
     Route: 048
     Dates: end: 20050101
  2. UNKNOWN [Suspect]
  3. UNKNOWN [Concomitant]

REACTIONS (2)
  - DERMATITIS CONTACT [None]
  - RASH ERYTHEMATOUS [None]
